FAERS Safety Report 26046276 (Version 1)
Quarter: 2025Q4

REPORT INFORMATION
  Report Type: Spontaneous
  Country: US (occurrence: None)
  Receive Date: 20251113
  Receipt Date: 20251113
  Transmission Date: 20260117
  Serious: Yes (Hospitalization)
  Sender: FDA-CTU
  Company Number: None

PATIENT
  Sex: Male

DRUGS (3)
  1. GLEOSTINE [Suspect]
     Active Substance: LOMUSTINE
     Indication: Brain neoplasm malignant
     Dosage: OTHER FREQUENCY : ONCE;?
     Route: 048
     Dates: start: 20251006
  2. GLEOSTINE (LOMUSTINE) [Concomitant]
     Indication: Brain neoplasm malignant
     Dosage: OTHER FREQUENCY : ONCE;?
     Route: 048
     Dates: start: 20251006
  3. TEMOZOLOMIDE [Concomitant]
     Active Substance: TEMOZOLOMIDE

REACTIONS (3)
  - Fatigue [None]
  - Cognitive disorder [None]
  - Neoplasm progression [None]
